FAERS Safety Report 8482836-3 (Version None)
Quarter: 2012Q2

REPORT INFORMATION
  Report Type: 
  Country: None (occurrence: None)
  Receive Date: 20120626
  Receipt Date: 20120614
  Transmission Date: 20120825
  Serious: Yes (Other)
  Sender: FDA-Public Use
  Company Number: 2012SP033268

PATIENT
  Age: 23 Year
  Sex: Male

DRUGS (2)
  1. SAPHRIS [Suspect]
     Indication: BIPOLAR DISORDER
     Dosage: 10 MG;QD;SL
     Route: 060
     Dates: start: 20120401, end: 20120606
  2. LAMICTAL [Concomitant]

REACTIONS (9)
  - DELIRIUM [None]
  - CONFUSIONAL STATE [None]
  - ATAXIA [None]
  - HEADACHE [None]
  - LOSS OF CONSCIOUSNESS [None]
  - DIZZINESS [None]
  - TRANSIENT ISCHAEMIC ATTACK [None]
  - DISORIENTATION [None]
  - DYSARTHRIA [None]
